FAERS Safety Report 19841217 (Version 4)
Quarter: 2021Q4

REPORT INFORMATION
  Report Type: Spontaneous
  Country: US (occurrence: US)
  Receive Date: 20210916
  Receipt Date: 20211207
  Transmission Date: 20220303
  Serious: Yes (Hospitalization)
  Sender: FDA-Public Use
  Company Number: US-PFIZER INC-202101189930

PATIENT
  Age: 65 Year
  Sex: Female
  Weight: 105.69 kg

DRUGS (1)
  1. LIPITOR [Suspect]
     Active Substance: ATORVASTATIN CALCIUM
     Indication: Blood cholesterol increased
     Dosage: UNK, 1X/DAY
     Dates: start: 201810

REACTIONS (1)
  - Immune-mediated myositis [Unknown]
